FAERS Safety Report 20892870 (Version 1)
Quarter: 2022Q2

REPORT INFORMATION
  Report Type: Spontaneous
  Country: PL (occurrence: PL)
  Receive Date: 20220531
  Receipt Date: 20220531
  Transmission Date: 20220721
  Serious: Yes (Death, Other)
  Sender: FDA-Public Use
  Company Number: PL-URPL-DML-MLP.4401.2.272.2022

PATIENT
  Age: 16 Year
  Sex: Female

DRUGS (1)
  1. METOPROLOL [Suspect]
     Active Substance: METOPROLOL
     Indication: Palpitations
     Dosage: 0.5 DOSAGE FORM, ONCE A DAY (HALF A TABLET IN THE MORNING)
     Route: 065
     Dates: start: 20211029, end: 20220408

REACTIONS (7)
  - Completed suicide [Fatal]
  - Intentional self-injury [Fatal]
  - Apathy [Fatal]
  - Internal injury [Fatal]
  - Depressive symptom [Fatal]
  - Somnolence [Fatal]
  - Social avoidant behaviour [Fatal]

NARRATIVE: CASE EVENT DATE: 20220408
